FAERS Safety Report 17292712 (Version 1)
Quarter: 2020Q1

REPORT INFORMATION
  Report Type: Report from Study
  Country: US (occurrence: US)
  Receive Date: 20200121
  Receipt Date: 20200121
  Transmission Date: 20200409
  Serious: Yes (Death)
  Sender: FDA-Public Use
  Company Number: US-BAYER-2020-004519

PATIENT
  Age: 59 Year
  Sex: Male

DRUGS (1)
  1. STIVARGA [Suspect]
     Active Substance: REGORAFENIB
     Indication: HEPATIC CANCER
     Dosage: 40 MG, TID
     Dates: start: 20191120, end: 20191125

REACTIONS (2)
  - Off label use [None]
  - Acute hepatic failure [Fatal]

NARRATIVE: CASE EVENT DATE: 20191120
